FAERS Safety Report 11225268 (Version 1)
Quarter: 2015Q2

REPORT INFORMATION
  Report Type: Spontaneous
  Country: US (occurrence: None)
  Receive Date: 20150626
  Receipt Date: 20150626
  Transmission Date: 20150821
  Serious: Yes (Other)
  Sender: FDA-Public Use
  Company Number: None

PATIENT
  Sex: Male

DRUGS (1)
  1. FLUOROURACIL. [Suspect]
     Active Substance: FLUOROURACIL

REACTIONS (8)
  - Sleep disorder [None]
  - Treatment failure [None]
  - Pain in extremity [None]
  - Skin exfoliation [None]
  - Scar [None]
  - Product packaging confusion [None]
  - Pain [None]
  - Erythema [None]

NARRATIVE: CASE EVENT DATE: 20140624
